FAERS Safety Report 9597620 (Version 1)
Quarter: 2013Q4

REPORT INFORMATION
  Report Type: Spontaneous
  Country: US (occurrence: US)
  Receive Date: 20131004
  Receipt Date: 20131004
  Transmission Date: 20140711
  Serious: No
  Sender: FDA-Public Use
  Company Number: US-AMGEN-USASP2013019987

PATIENT
  Age: 52 Year
  Sex: Female

DRUGS (6)
  1. ENBREL [Suspect]
     Indication: PRODUCT USED FOR UNKNOWN INDICATION
     Dosage: 50 MG, QWK
  2. HYDROCHLOROTH [Concomitant]
     Dosage: 12.5 MG, UNK
  3. LEVOTHYROXINE [Concomitant]
     Dosage: 25 MCG, UNK
  4. ESTRADIOL [Concomitant]
     Dosage: 0.025 MG, UNK
  5. CALCIUM +D                         /00944201/ [Concomitant]
     Dosage: UNK
  6. PROBIOTIC                          /06395501/ [Concomitant]
     Dosage: UNK

REACTIONS (3)
  - Injection site reaction [Unknown]
  - Injection site swelling [Unknown]
  - Injection site erythema [Unknown]
